FAERS Safety Report 8963034 (Version 1)
Quarter: 2012Q4

REPORT INFORMATION
  Report Type: Spontaneous
  Country: US (occurrence: None)
  Receive Date: 20121204
  Receipt Date: 20121204
  Transmission Date: 20130627
  Serious: Yes (Hospitalization)
  Sender: FDA-Public Use
  Company Number: 142428

PATIENT
  Age: 57 Year
  Sex: Male

DRUGS (1)
  1. CYTARABINE [Suspect]
     Indication: ACUTE MYELOID LEUKEMIA
     Dosage: 6.6 g/IV
     Route: 042
     Dates: start: 20121011, end: 20121015

REACTIONS (2)
  - Cellulitis [None]
  - General physical health deterioration [None]
